FAERS Safety Report 20860731 (Version 1)
Quarter: 2022Q2

REPORT INFORMATION
  Report Type: Other
  Country: ES (occurrence: ES)
  Receive Date: 20220523
  Receipt Date: 20220523
  Transmission Date: 20220721
  Serious: Yes (Hospitalization)
  Sender: FDA-Public Use
  Company Number: SP-DEXPHARM-20220647

PATIENT
  Age: 24 Year
  Sex: Male

DRUGS (2)
  1. OMEPRAZOLE [Suspect]
     Active Substance: OMEPRAZOLE
  2. LANSOPRAZOLE [Suspect]
     Active Substance: LANSOPRAZOLE

REACTIONS (3)
  - Decubitus ulcer [Recovered/Resolved]
  - Gastric ulcer perforation [Recovered/Resolved]
  - Drug withdrawal syndrome [Recovered/Resolved]
